FAERS Safety Report 8790462 (Version 1)
Quarter: 2012Q4

REPORT INFORMATION
  Report Type: Spontaneous
  Country: US (occurrence: None)
  Receive Date: 20120911
  Receipt Date: 20120911
  Transmission Date: 20130627
  Serious: Yes (Hospitalization)
  Sender: FDA-Public Use
  Company Number: None

PATIENT
  Sex: Female
  Weight: 81 kg

DRUGS (3)
  1. BLEOMYCIN [Suspect]
  2. CISPLATIN [Suspect]
  3. ETOPOSIDE [Suspect]

REACTIONS (8)
  - Syncope [None]
  - Dizziness [None]
  - Nausea [None]
  - Asthenia [None]
  - Fatigue [None]
  - Blood potassium decreased [None]
  - Blood urine present [None]
  - Hypovolaemia [None]
